FAERS Safety Report 25395010 (Version 1)
Quarter: 2025Q2

REPORT INFORMATION
  Report Type: Spontaneous
  Country: FI (occurrence: FI)
  Receive Date: 20250604
  Receipt Date: 20250604
  Transmission Date: 20250717
  Serious: Yes (Other)
  Sender: RANBAXY
  Company Number: FI-SUN PHARMACEUTICAL INDUSTRIES INC-2025R1-509795

PATIENT
  Age: 26 Year
  Sex: Female

DRUGS (2)
  1. METHYLPHENIDATE [Suspect]
     Active Substance: METHYLPHENIDATE
     Indication: Attention deficit hyperactivity disorder
     Route: 042
  2. POVIDONE [Suspect]
     Active Substance: POVIDONE
     Indication: Histiocytosis
     Route: 065

REACTIONS (5)
  - Visual impairment [Unknown]
  - Angioedema [Unknown]
  - Incorrect route of product administration [Unknown]
  - Myopia [Unknown]
  - Swelling of eyelid [Unknown]
